FAERS Safety Report 6382846-6 (Version None)
Quarter: 2009Q3

REPORT INFORMATION
  Report Type: 
  Country: None (occurrence: None)
  Receive Date: 20090930
  Receipt Date: 20090924
  Transmission Date: 20100115
  Serious: Yes (Other)
  Sender: FDA-Public Use
  Company Number: US-WYE-H11210509

PATIENT
  Weight: 74.91 kg

DRUGS (7)
  1. RAPAMUNE [Suspect]
     Indication: PROPHYLAXIS AGAINST TRANSPLANT REJECTION
     Route: 048
     Dates: start: 20040316
  2. PREDNISONE TAB [Concomitant]
     Indication: PROPHYLAXIS AGAINST TRANSPLANT REJECTION
     Route: 048
  3. FOLIC ACID [Concomitant]
  4. CLONIDINE [Concomitant]
     Indication: HYPERTENSION
     Route: 048
  5. MULTI-VITAMINS [Concomitant]
  6. NEORAL [Concomitant]
     Indication: PROPHYLAXIS AGAINST TRANSPLANT REJECTION
     Dosage: 30MG IN THE AM AND 25 MG IN THE PM
     Route: 048
  7. LABETALOL HCL [Concomitant]
     Indication: HYPERTENSION
     Route: 048

REACTIONS (2)
  - ABORTION SPONTANEOUS [None]
  - DRUG EXPOSURE DURING PREGNANCY [None]
